FAERS Safety Report 16894636 (Version 2)
Quarter: 2019Q4

REPORT INFORMATION
  Report Type: Spontaneous
  Country: US (occurrence: US)
  Receive Date: 20191008
  Receipt Date: 20191010
  Transmission Date: 20200122
  Serious: No
  Sender: FDA-Public Use
  Company Number: US-PFIZER INC-2019419712

PATIENT
  Age: 70 Year
  Sex: Male

DRUGS (3)
  1. FLECTOR [Suspect]
     Active Substance: DICLOFENAC EPOLAMINE
     Indication: OSTEOARTHRITIS
     Dosage: 1 DF, 2X/DAY (1 TO SORE AREA AS DIRECTED)
     Route: 061
  2. FLECTOR [Suspect]
     Active Substance: DICLOFENAC EPOLAMINE
     Indication: ARTHRITIS
  3. FLECTOR [Suspect]
     Active Substance: DICLOFENAC EPOLAMINE
     Indication: PAIN

REACTIONS (3)
  - Malaise [Unknown]
  - Off label use [Unknown]
  - Product use in unapproved indication [Unknown]
